FAERS Safety Report 10091745 (Version 1)
Quarter: 2014Q2

REPORT INFORMATION
  Report Type: Spontaneous
  Country: US (occurrence: US)
  Receive Date: 20140421
  Receipt Date: 20140421
  Transmission Date: 20141212
  Serious: No
  Sender: FDA-Public Use
  Company Number: US-PURDUE-USA-2003-0006071

PATIENT
  Age: 37 Year
  Sex: Male
  Weight: 74.83 kg

DRUGS (2)
  1. OXYIR CAPSULES 5 MG [Suspect]
     Indication: PAIN
     Dosage: 1 CAP, Q2H
     Route: 048
  2. ATENOLOL [Concomitant]
     Indication: PRODUCT USED FOR UNKNOWN INDICATION
     Dosage: 25 MG, BID
     Route: 048

REACTIONS (9)
  - Tachycardia [None]
  - Drug ineffective [None]
  - Rash [None]
  - Dyspnoea [None]
  - Dizziness [None]
  - Nausea [None]
  - Vomiting [None]
  - Headache [None]
  - Dysgeusia [None]
